FAERS Safety Report 8315236-7 (Version None)
Quarter: 2012Q2

REPORT INFORMATION
  Report Type: 
  Country: None (occurrence: None)
  Receive Date: 20120426
  Receipt Date: 20120109
  Transmission Date: 20120825
  Serious: No
  Sender: FDA-Public Use
  Company Number: US-MYLANLABS-2011S1024567

PATIENT
  Age: 77 Year
  Sex: Female

DRUGS (1)
  1. DILTIAZEM HCL [Suspect]
     Indication: HYPERTENSION
     Dates: start: 20111020, end: 20111104

REACTIONS (4)
  - DIZZINESS [None]
  - REACTION TO DRUG EXCIPIENTS [None]
  - NAUSEA [None]
  - VOMITING [None]
